FAERS Safety Report 10831737 (Version 1)
Quarter: 2015Q1

REPORT INFORMATION
  Report Type: Report from Study
  Country: US (occurrence: US)
  Receive Date: 20150219
  Receipt Date: 20150219
  Transmission Date: 20150721
  Serious: No
  Sender: FDA-Public Use
  Company Number: US-ABBVIE-14P-163-1195138-00

PATIENT
  Age: 70 Year
  Sex: Male

DRUGS (9)
  1. STEROID [Suspect]
     Active Substance: UNSPECIFIED INGREDIENT
     Indication: BACK PAIN
  2. LORTAB [Concomitant]
     Active Substance: ACETAMINOPHEN\HYDROCODONE BITARTRATE
     Indication: ARTHRALGIA
     Dosage: X1
  3. ALTACE [Concomitant]
     Active Substance: RAMIPRIL
     Indication: HYPERTENSION
     Dosage: X1
  4. STEROID [Suspect]
     Active Substance: UNSPECIFIED INGREDIENT
     Indication: ARTHRALGIA
  5. PREDNISONE. [Concomitant]
     Active Substance: PREDNISONE
     Indication: RHEUMATOID ARTHRITIS
     Dosage: X1
  6. HUMIRA [Suspect]
     Active Substance: ADALIMUMAB
     Indication: RHEUMATOID ARTHRITIS
     Dates: end: 20131215
  7. TRAZODONE [Concomitant]
     Active Substance: TRAZODONE HYDROCHLORIDE
     Indication: INSOMNIA
     Dosage: AT BED TIME
  8. STEROID [Suspect]
     Active Substance: UNSPECIFIED INGREDIENT
     Indication: ARTHRALGIA
  9. LANSOPRAZOLE DR [Concomitant]
     Indication: GASTROOESOPHAGEAL REFLUX DISEASE
     Dosage: X1

REACTIONS (17)
  - Arthralgia [Not Recovered/Not Resolved]
  - Dysgeusia [Unknown]
  - Oral discomfort [Unknown]
  - Oral mucosal blistering [Unknown]
  - Arrhythmia [Not Recovered/Not Resolved]
  - Inappropriate schedule of drug administration [Unknown]
  - Drug ineffective [Unknown]
  - Gastrooesophageal reflux disease [Unknown]
  - Nasal discomfort [Unknown]
  - Vision blurred [Unknown]
  - Chest pain [Unknown]
  - Abdominal pain upper [Unknown]
  - Cold sweat [Unknown]
  - Haemorrhage [Unknown]
  - Sleep disorder [Unknown]
  - Abdominal discomfort [Unknown]
  - Headache [Unknown]

NARRATIVE: CASE EVENT DATE: 2013
